FAERS Safety Report 16098443 (Version 3)
Quarter: 2019Q2

REPORT INFORMATION
  Report Type: Report from Study
  Country: GB (occurrence: GB)
  Receive Date: 20190321
  Receipt Date: 20190411
  Transmission Date: 20190711
  Serious: Yes (Life-Threatening, Other)
  Sender: FDA-Public Use
  Company Number: GB-CELLTRION INC.-2019GB019356

PATIENT

DRUGS (8)
  1. TRUXIMA [Suspect]
     Active Substance: RITUXIMAB-ABBS
     Dosage: 700 MG, (EVERY 21 DAYS; CYCLE 8)
     Route: 042
     Dates: start: 20180419
  2. TRUXIMA [Suspect]
     Active Substance: RITUXIMAB-ABBS
     Indication: DIFFUSE LARGE B-CELL LYMPHOMA
     Dosage: 700 MG, (EVERY 21 DAYS; CYCLE 1)
     Route: 042
     Dates: start: 20171030
  3. TRUXIMA [Suspect]
     Active Substance: RITUXIMAB-ABBS
     Dosage: 700 MG, (EVERY 21 DAYS; CYCLE 4)
     Route: 042
     Dates: start: 20180125
  4. TRUXIMA [Suspect]
     Active Substance: RITUXIMAB-ABBS
     Dosage: 700 MG, (EVERY 21 DAYS; CYCLE 5)
     Route: 042
     Dates: start: 20180215
  5. TRUXIMA [Suspect]
     Active Substance: RITUXIMAB-ABBS
     Dosage: 700 MG, (EVERY 21 DAYS; CYCLE 6)
     Route: 042
     Dates: start: 20180308
  6. TRUXIMA [Suspect]
     Active Substance: RITUXIMAB-ABBS
     Dosage: 700 MG, (EVERY 21 DAYS; CYCLE 2)
     Route: 042
     Dates: start: 20171213
  7. TRUXIMA [Suspect]
     Active Substance: RITUXIMAB-ABBS
     Dosage: 700 MG, (EVERY 21 DAYS; CYCLE 7)
     Route: 042
     Dates: start: 20180329
  8. TRUXIMA [Suspect]
     Active Substance: RITUXIMAB-ABBS
     Dosage: 700 MG, (EVERY 21 DAYS; CYCLE 3)
     Route: 042
     Dates: start: 20180104

REACTIONS (3)
  - Abdominal pain [Recovered/Resolved]
  - Cerebral infarction [Recovering/Resolving]
  - Intestinal perforation [Recovered/Resolved]

NARRATIVE: CASE EVENT DATE: 20171121
